FAERS Safety Report 10596175 (Version 2)
Quarter: 2014Q4

REPORT INFORMATION
  Report Type: Spontaneous
  Country: BR (occurrence: BR)
  Receive Date: 20141120
  Receipt Date: 20141202
  Transmission Date: 20150529
  Serious: Yes (Other)
  Sender: FDA-Public Use
  Company Number: BR-PFIZER INC-2014319745

PATIENT
  Age: 72 Year
  Sex: Female

DRUGS (6)
  1. LIPITOR [Suspect]
     Active Substance: ATORVASTATIN CALCIUM
     Indication: BLOOD CHOLESTEROL
  2. GLIMEPIRIDA [Concomitant]
     Active Substance: GLIMEPIRIDE
     Dosage: 1 TABLET OF 2 MG IN THE MORNING AND 2 TABLETS OF 4 MG AFTER LUNCH
  3. GLIFAGE [Concomitant]
     Active Substance: METFORMIN HYDROCHLORIDE
     Dosage: AT NIGHT
  4. LIPITOR [Suspect]
     Active Substance: ATORVASTATIN CALCIUM
     Indication: CAROTID ARTERY DISEASE
     Dosage: 20 MG AFTER DINNER
     Route: 048
     Dates: start: 2013, end: 201411
  5. GLICLAZIDE [Concomitant]
     Active Substance: GLICLAZIDE
     Dosage: 30 MG, AT NIGHT
  6. CLOPIDOGREL [Concomitant]
     Active Substance: CLOPIDOGREL BISULFATE
     Dosage: 1 TABLET AFTER LUNCH

REACTIONS (1)
  - Blood glucose increased [Unknown]
